FAERS Safety Report 5634516-7 (Version None)
Quarter: 2008Q1

REPORT INFORMATION
  Report Type: 
  Country: None (occurrence: None)
  Receive Date: 20080222
  Receipt Date: 20080213
  Transmission Date: 20080703
  Serious: Yes (Death, Life-Threatening, Hospitalization)
  Sender: FDA-Public Use
  Company Number: FR-JNJFOC-20080202789

PATIENT
  Age: 8 Decade
  Sex: Female
  Weight: 59.2 kg

DRUGS (8)
  1. INFLIXIMAB [Suspect]
     Route: 042
  2. INFLIXIMAB [Suspect]
     Route: 042
  3. INFLIXIMAB [Suspect]
     Route: 042
  4. INFLIXIMAB [Suspect]
     Route: 042
  5. INFLIXIMAB [Suspect]
     Indication: CROHN'S DISEASE
     Route: 042
  6. MOLSIDOMINE [Concomitant]
     Indication: CARDIAC DISORDER
  7. RISOPROLOL [Concomitant]
     Indication: CARDIAC DISORDER
  8. FUROSEMIDE [Concomitant]
     Indication: CARDIAC DISORDER
     Dosage: HALF DAY

REACTIONS (2)
  - ACUTE PULMONARY OEDEMA [None]
  - RAYNAUD'S PHENOMENON [None]
